FAERS Safety Report 15701396 (Version 1)
Quarter: 2018Q4

REPORT INFORMATION
  Report Type: Spontaneous
  Country: FR (occurrence: FR)
  Receive Date: 20181207
  Receipt Date: 20181207
  Transmission Date: 20190205
  Serious: Yes (Other)
  Sender: FDA-Public Use
  Company Number: FR-TEVA-2018-FR-983120

PATIENT
  Age: 76 Year
  Sex: Male
  Weight: 69 kg

DRUGS (2)
  1. SPIRONOLACTONE ARROW 50 MG, COMPRIM? PELLICUL? S?CABLE [Suspect]
     Active Substance: SPIRONOLACTONE
     Indication: CARDIAC FAILURE ACUTE
     Dosage: 50 MILLIGRAM DAILY;
     Route: 048
     Dates: start: 20181013, end: 20181024
  2. FUROSEMIDE TEVA 500 MG, COMPRIM? S?CABLE [Suspect]
     Active Substance: FUROSEMIDE
     Indication: CARDIAC FAILURE ACUTE
     Dosage: 1250 MILLIGRAM DAILY;
     Route: 048
     Dates: start: 20181013

REACTIONS (1)
  - Acute kidney injury [Recovered/Resolved]

NARRATIVE: CASE EVENT DATE: 20181024
